FAERS Safety Report 4808852-8 (Version None)
Quarter: 2005Q4

REPORT INFORMATION
  Report Type: 
  Country: None (occurrence: None)
  Receive Date: 20051021
  Receipt Date: 20041101
  Transmission Date: 20060501
  Serious: No
  Sender: FDA-Public Use
  Company Number: AU_041108173

PATIENT
  Age: 18 Year
  Sex: Female

DRUGS (2)
  1. OLANZAPINE [Suspect]
     Indication: ANOREXIA NERVOSA
     Dosage: 15 MG/1 DAY
     Dates: start: 20040915, end: 20041014
  2. FLUOXETINE [Suspect]
     Dosage: 60 MG/1 DAY
     Dates: start: 20030801

REACTIONS (2)
  - ANAEMIA [None]
  - OEDEMA PERIPHERAL [None]
